FAERS Safety Report 8519360-5 (Version None)
Quarter: 2012Q3

REPORT INFORMATION
  Report Type: 
  Country: None (occurrence: None)
  Receive Date: 20120718
  Receipt Date: 20120712
  Transmission Date: 20120928
  Serious: Yes (Hospitalization, Other)
  Sender: FDA-Public Use
  Company Number: PHHY2012JP057720

PATIENT
  Age: 60 Year
  Sex: Female

DRUGS (7)
  1. PREDNISOLONE [Suspect]
     Dosage: 45 MG, UNK
     Route: 048
  2. PREDNISOLONE [Suspect]
     Dosage: 40 MG, UNK
     Route: 048
  3. PREDNISOLONE [Suspect]
     Indication: DERMATOMYOSITIS
     Dosage: 60 MG, UNK
     Route: 048
  4. PREDNISOLONE [Suspect]
     Dosage: 12 MG, UNK
     Route: 048
  5. PREDNISOLONE [Suspect]
     Dosage: 15 MG, UNK
     Route: 048
  6. CYCLOSPORINE [Suspect]
     Indication: DERMATOMYOSITIS
     Dosage: 50 MG, UNK
     Route: 048
  7. CYCLOSPORINE [Suspect]
     Dosage: 50 MG, UNK
     Route: 048

REACTIONS (7)
  - HYPOXIA [None]
  - ARTHRALGIA [None]
  - PYREXIA [None]
  - DRUG RESISTANCE [None]
  - ATYPICAL MYCOBACTERIAL INFECTION [None]
  - DISEASE RECURRENCE [None]
  - BLOOD CREATINE PHOSPHOKINASE INCREASED [None]
